FAERS Safety Report 4575163-8 (Version None)
Quarter: 2005Q1

REPORT INFORMATION
  Report Type: 
  Country: None (occurrence: None)
  Receive Date: 20050208
  Receipt Date: 20030605
  Transmission Date: 20050727
  Serious: Yes (Hospitalization, Other)
  Sender: FDA-Public Use
  Company Number: US-MERCK-0306USA00609

PATIENT
  Age: 56 Year
  Sex: Female
  Weight: 67 kg

DRUGS (3)
  1. VIOXX [Suspect]
     Route: 048
  2. MONOPRIL [Concomitant]
     Route: 065
  3. ESTRACE [Concomitant]
     Route: 065

REACTIONS (21)
  - ANGINA PECTORIS [None]
  - BLOOD PRESSURE INCREASED [None]
  - BURSITIS [None]
  - CARBUNCLE [None]
  - CERVICAL ROOT PAIN [None]
  - CHEST PAIN [None]
  - CONVULSION [None]
  - CORONARY ARTERY DISEASE [None]
  - FLATULENCE [None]
  - HYPERLIPIDAEMIA [None]
  - HYPERTENSION [None]
  - JOINT STIFFNESS [None]
  - MUSCLE SPASMS [None]
  - MYALGIA [None]
  - MYOCARDIAL INFARCTION [None]
  - NEUROPATHY PERIPHERAL [None]
  - SINUSITIS [None]
  - TENSION HEADACHE [None]
  - TINEL'S SIGN [None]
  - VENTRICULAR TACHYCARDIA [None]
  - WEIGHT INCREASED [None]
